FAERS Safety Report 8620764-0 (Version None)
Quarter: 2012Q3

REPORT INFORMATION
  Report Type: 
  Country: None (occurrence: None)
  Receive Date: 20120824
  Receipt Date: 20120820
  Transmission Date: 20120928
  Serious: Yes (Life-Threatening, Hospitalization, Disabling)
  Sender: FDA-Public Use
  Company Number: AU-ASTRAZENECA-2012SE31366

PATIENT
  Age: 46 Year
  Sex: Female

DRUGS (4)
  1. CYMBALTA [Suspect]
     Route: 048
  2. OPIATES [Concomitant]
  3. REBOXETINE [Concomitant]
     Dosage: TWICE A DAY
  4. SEROQUEL [Suspect]
     Route: 048

REACTIONS (3)
  - OFF LABEL USE [None]
  - VENTRICULAR FIBRILLATION [None]
  - ELECTROCARDIOGRAM QT PROLONGED [None]
